FAERS Safety Report 5726472-8 (Version None)
Quarter: 2008Q2

REPORT INFORMATION
  Report Type: 
  Country: None (occurrence: None)
  Receive Date: 20080502
  Receipt Date: 20080404
  Transmission Date: 20081010
  Serious: Yes (Hospitalization, Other)
  Sender: FDA-Public Use
  Company Number: US-GILEAD-2007-0012761

PATIENT
  Sex: Female
  Weight: 122 kg

DRUGS (9)
  1. AMBRISENTAN [Suspect]
     Indication: PULMONARY HYPERTENSION
     Route: 048
     Dates: start: 20060202, end: 20070718
  2. SILDENAFIL CITRATE [Concomitant]
     Dates: start: 20070717
  3. SILDENAFIL CITRATE [Concomitant]
     Dates: start: 20070313, end: 20070717
  4. WARFARIN SODIUM [Concomitant]
     Dates: start: 20070619, end: 20070718
  5. FUROSEMIDE [Concomitant]
     Route: 048
     Dates: start: 20070701, end: 20070717
  6. LISINOPRIL [Concomitant]
     Dates: start: 20070701
  7. DILTIAZEM HCL [Concomitant]
     Dates: start: 20070525, end: 20070717
  8. GLIPIZIDE [Concomitant]
     Dates: start: 20061026, end: 20070718
  9. SALSALATE [Concomitant]
     Dates: start: 20070612

REACTIONS (16)
  - ALANINE AMINOTRANSFERASE INCREASED [None]
  - ASPARTATE AMINOTRANSFERASE INCREASED [None]
  - ATRIAL FIBRILLATION [None]
  - ATRIAL FLUTTER [None]
  - BLOOD ALKALINE PHOSPHATASE INCREASED [None]
  - BLOOD LACTATE DEHYDROGENASE INCREASED [None]
  - CARDIOMEGALY [None]
  - GAMMA-GLUTAMYLTRANSFERASE INCREASED [None]
  - HYPOVOLAEMIA [None]
  - LIVER FUNCTION TEST ABNORMAL [None]
  - PLEURAL EFFUSION [None]
  - PULMONARY HYPERTENSION [None]
  - RIGHT VENTRICULAR FAILURE [None]
  - RIGHT VENTRICULAR HYPERTROPHY [None]
  - TACHYCARDIA [None]
  - WEIGHT INCREASED [None]
